FAERS Safety Report 5701684-8 (Version None)
Quarter: 2008Q2

REPORT INFORMATION
  Report Type: 
  Country: None (occurrence: None)
  Receive Date: 20080408
  Receipt Date: 20080324
  Transmission Date: 20081010
  Serious: Yes (Disabling, Other)
  Sender: FDA-Public Use
  Company Number: DSA_31657_2008

PATIENT
  Sex: Female
  Weight: 108.8633 kg

DRUGS (9)
  1. DILTIAZEM HCL [Suspect]
     Indication: ATRIAL FIBRILLATION
     Dosage: DF
     Dates: start: 20071217, end: 20071217
  2. DILTIAZEM HYDROCHLORIDE [Suspect]
     Indication: ATRIAL FIBRILLATION
     Dosage: DF
     Dates: start: 20060801, end: 20071216
  3. TAURINE [Concomitant]
  4. COUMADIN [Concomitant]
  5. VITAMIN B-COMPLEX /90004601/ [Concomitant]
  6. VITAMIN C /00008001/ [Concomitant]
  7. VITAMIN E /05494901/ [Concomitant]
  8. MSM WITH GLUCOSAMINE /05460301/ [Concomitant]
  9. CHONDROITIN [Concomitant]

REACTIONS (7)
  - ABASIA [None]
  - ASTHENIA [None]
  - GAIT DISTURBANCE [None]
  - OEDEMA PERIPHERAL [None]
  - PAIN IN EXTREMITY [None]
  - PHARMACEUTICAL PRODUCT COMPLAINT [None]
  - WALKING AID USER [None]
